FAERS Safety Report 20877160 (Version 1)
Quarter: 2022Q2

REPORT INFORMATION
  Report Type: Spontaneous
  Country: US (occurrence: None)
  Receive Date: 20220526
  Receipt Date: 20220526
  Transmission Date: 20220720
  Serious: No
  Sender: FDA-Public Use
  Company Number: None

PATIENT
  Age: 74 Year
  Sex: Male
  Weight: 91 kg

DRUGS (1)
  1. BENZTROPINE MESYLATE [Suspect]
     Active Substance: BENZTROPINE MESYLATE
     Dates: start: 20220422, end: 20220422

REACTIONS (4)
  - Mental status changes [None]
  - Abnormal behaviour [None]
  - Confusional state [None]
  - Hallucinations, mixed [None]

NARRATIVE: CASE EVENT DATE: 20220429
